FAERS Safety Report 4489166-5 (Version None)
Quarter: 2004Q4

REPORT INFORMATION
  Report Type: 
  Country: None (occurrence: None)
  Receive Date: 20041028
  Receipt Date: 20041021
  Transmission Date: 20050328
  Serious: Yes (Hospitalization, Other)
  Sender: FDA-Public Use
  Company Number: 51763

PATIENT
  Sex: Male

DRUGS (2)
  1. 12 HOUR PSEUDOEPHED, 120MG, PERRIGO COMPANY [Suspect]
     Dosage: 2 TABLETS, ORALLY
     Route: 048
  2. LORATADINE D-24 HOUR [Concomitant]

REACTIONS (2)
  - ARRHYTHMIA [None]
  - OVERDOSE [None]
